FAERS Safety Report 20044249 (Version 1)
Quarter: 2021Q4

REPORT INFORMATION
  Report Type: Spontaneous
  Country: US (occurrence: US)
  Receive Date: 20211108
  Receipt Date: 20211108
  Transmission Date: 20220303
  Serious: No
  Sender: FDA-Public Use
  Company Number: US-GLAXOSMITHKLINE-US2021AMR226585

PATIENT
  Sex: Female

DRUGS (1)
  1. TRELEGY ELLIPTA [Suspect]
     Active Substance: FLUTICASONE FUROATE\UMECLIDINIUM BROMIDE\VILANTEROL TRIFENATATE
     Indication: Product used for unknown indication
     Dosage: UNK

REACTIONS (10)
  - Nausea [Unknown]
  - Decreased appetite [Unknown]
  - Urinary tract disorder [Unknown]
  - Back pain [Unknown]
  - Pelvic pain [Unknown]
  - Oropharyngeal pain [Unknown]
  - Dysuria [Unknown]
  - Bladder pain [Unknown]
  - Haematuria [Unknown]
  - Condition aggravated [Unknown]
